FAERS Safety Report 9969974 (Version 1)
Quarter: 2014Q1

REPORT INFORMATION
  Report Type: Spontaneous
  Country: US (occurrence: None)
  Receive Date: 20140305
  Receipt Date: 20140305
  Transmission Date: 20141002
  Serious: Yes (Death, Hospitalization, Disabling)
  Sender: FDA-Public Use
  Company Number: None

PATIENT
  Age: 62 Year
  Sex: Female
  Weight: 86.18 kg

DRUGS (1)
  1. AVASTIN [Suspect]
     Dosage: INTO A VEIN

REACTIONS (5)
  - Diarrhoea [None]
  - Constipation [None]
  - Hypophagia [None]
  - Impaired gastric emptying [None]
  - General physical health deterioration [None]
